FAERS Safety Report 8265843-5 (Version None)
Quarter: 2012Q2

REPORT INFORMATION
  Report Type: 
  Country: None (occurrence: None)
  Receive Date: 20120406
  Receipt Date: 20120328
  Transmission Date: 20120825
  Serious: Yes (Hospitalization, Other)
  Sender: FDA-Public Use
  Company Number: US-CELGENEUS-163-21880-12021878

PATIENT
  Sex: Female

DRUGS (3)
  1. REVLIMID [Suspect]
     Dosage: 15 MILLIGRAM
     Route: 048
     Dates: start: 20120101
  2. PREDNISONE [Concomitant]
     Route: 065
     Dates: start: 20120101
  3. REVLIMID [Suspect]
     Indication: MULTIPLE MYELOMA
     Dosage: 15 MILLIGRAM
     Route: 048
     Dates: start: 20120116

REACTIONS (7)
  - ARTHRITIS BACTERIAL [None]
  - JOINT DISLOCATION [None]
  - ANAEMIA [None]
  - MULTIPLE MYELOMA [None]
  - CELLULITIS [None]
  - DIARRHOEA [None]
  - NASOPHARYNGITIS [None]
